FAERS Safety Report 6059628-8 (Version None)
Quarter: 2009Q1

REPORT INFORMATION
  Report Type: 
  Country: None (occurrence: None)
  Receive Date: 20090130
  Receipt Date: 20090123
  Transmission Date: 20090719
  Serious: Yes (Hospitalization)
  Sender: FDA-Public Use
  Company Number: US-BIOGENIDEC-2008BI019257

PATIENT
  Age: 24 Year
  Sex: Female

DRUGS (3)
  1. TYSABRI [Suspect]
     Indication: MULTIPLE SCLEROSIS
     Route: 042
     Dates: start: 20080620
  2. DDAVP [Concomitant]
     Indication: DRUG USE FOR UNKNOWN INDICATION
  3. OXYTROL [Concomitant]
     Indication: DRUG USE FOR UNKNOWN INDICATION

REACTIONS (1)
  - DEEP VEIN THROMBOSIS [None]
